FAERS Safety Report 4392555-0 (Version None)
Quarter: 2004Q3

REPORT INFORMATION
  Report Type: 
  Country: None (occurrence: None)
  Receive Date: 20040702
  Receipt Date: 20040618
  Transmission Date: 20050211
  Serious: Yes (Death, Other)
  Sender: FDA-Public Use
  Company Number: USA-2004-0014093

PATIENT
  Age: 47 Year
  Sex: Male
  Weight: 95.2 kg

DRUGS (17)
  1. OXYCONTIN [Suspect]
     Indication: PAIN
     Dosage: SEE IMAGE
  2. HYDROCODONE BITARTRATE [Suspect]
  3. DIHYDROCODEINE BITARTRATE, ACETAMINOPHEN AND CAFFEINE [Suspect]
  4. METHADONE HCL [Suspect]
  5. VALIUM [Suspect]
  6. NICOTINE [Concomitant]
  7. DOXEPIN HCL [Concomitant]
  8. ELAVIL [Concomitant]
  9. TOPAMAX [Concomitant]
  10. SONATA [Concomitant]
  11. PREDNISONE TAB [Concomitant]
  12. LORTAB [Concomitant]
  13. LORCET-HD [Concomitant]
  14. AMERGE [Concomitant]
  15. PROPRANOLOL [Concomitant]
  16. DEPAKOTE [Concomitant]
  17. IMITREX [Concomitant]

REACTIONS (32)
  - ACCIDENT [None]
  - ACCIDENTAL OVERDOSE [None]
  - ANXIETY [None]
  - COMPLEX PARTIAL SEIZURES [None]
  - CONDITION AGGRAVATED [None]
  - CONVULSION [None]
  - DEAFNESS [None]
  - DEPRESSION [None]
  - DRUG DEPENDENCE [None]
  - DRUG INEFFECTIVE [None]
  - DRUG TOXICITY [None]
  - DYSARTHRIA [None]
  - EAR PAIN [None]
  - ELECTROCUTION [None]
  - ERYTHEMA [None]
  - GAS POISONING [None]
  - GRAND MAL CONVULSION [None]
  - HALLUCINATIONS, MIXED [None]
  - HEADACHE [None]
  - INNER EAR DISORDER [None]
  - INSOMNIA [None]
  - MULTIPLE DRUG OVERDOSE [None]
  - NASOPHARYNGEAL DISORDER [None]
  - NECK PAIN [None]
  - PAIN [None]
  - PAIN IN EXTREMITY [None]
  - PAIN IN JAW [None]
  - PARAESTHESIA [None]
  - PETECHIAE [None]
  - REFLEX SYMPATHETIC DYSTROPHY [None]
  - TENDERNESS [None]
  - TINNITUS [None]
